FAERS Safety Report 17153036 (Version 5)
Quarter: 2021Q4

REPORT INFORMATION
  Report Type: Report from Study
  Country: DE (occurrence: DE)
  Receive Date: 20191213
  Receipt Date: 20211129
  Transmission Date: 20220303
  Serious: Yes (Hospitalization)
  Sender: FDA-Public Use
  Company Number: DE-NOVPHSZ-PHHY2018DE163953

PATIENT
  Sex: Female

DRUGS (2)
  1. METHOTREXATE [Suspect]
     Active Substance: METHOTREXATE
     Indication: Product used for unknown indication
     Dosage: 5 MILLIGRAM, QW
     Route: 065
  2. RITUXIMAB [Suspect]
     Active Substance: RITUXIMAB
     Indication: Rheumatoid arthritis
     Dosage: 1000 MG, EVERY 26 WEEKS
     Route: 065
     Dates: start: 20180124

REACTIONS (6)
  - Cataract [Recovered/Resolved]
  - Nasopharyngitis [Recovered/Resolved]
  - Thermal burn [Recovered/Resolved]
  - Productive cough [Recovered/Resolved]
  - Influenza like illness [Recovered/Resolved]
  - Sleep disorder [Not Recovered/Not Resolved]

NARRATIVE: CASE EVENT DATE: 20180501
